FAERS Safety Report 4703792-7 (Version None)
Quarter: 2005Q2

REPORT INFORMATION
  Report Type: 
  Country: None (occurrence: None)
  Receive Date: 20050629
  Receipt Date: 20050629
  Transmission Date: 20051028
  Serious: Yes (Hospitalization, Disabling)
  Sender: FDA-Public Use
  Company Number: None

PATIENT
  Age: 44 Year
  Sex: Female
  Weight: 47.6277 kg

DRUGS (1)
  1. CITALOPRAM    20 MG TABLET    GEN  COSTCO [Suspect]
     Indication: ANXIETY
     Dosage: 10 MG/DAY
     Dates: start: 20050615, end: 20050625

REACTIONS (8)
  - ANXIETY [None]
  - DEPRESSION [None]
  - DYSPNOEA [None]
  - HEADACHE [None]
  - HYPERTENSION [None]
  - NAUSEA [None]
  - PANIC ATTACK [None]
  - VISION BLURRED [None]
